FAERS Safety Report 13663592 (Version 4)
Quarter: 2018Q1

REPORT INFORMATION
  Report Type: Spontaneous
  Country: US (occurrence: US)
  Receive Date: 20170619
  Receipt Date: 20180110
  Transmission Date: 20180508
  Serious: No
  Sender: FDA-Public Use
  Company Number: US-PFIZER INC-2017263967

PATIENT
  Age: 67 Year
  Sex: Female
  Weight: 79 kg

DRUGS (4)
  1. LETROZOLE. [Concomitant]
     Active Substance: LETROZOLE
     Dosage: UNK
  2. IBRANCE [Suspect]
     Active Substance: PALBOCICLIB
     Dosage: 100 MG, CYCLIC (ONE CAPSULE A DAY FOR 21 DAYS AND ONE WEEK OFF)
  3. IBRANCE [Suspect]
     Active Substance: PALBOCICLIB
     Indication: BREAST CANCER METASTATIC
     Dosage: 100 MG, UNK, (21 DAYS)
     Dates: start: 20170215
  4. IBRANCE [Suspect]
     Active Substance: PALBOCICLIB
     Dosage: 125 MG, UNK
     Dates: start: 20170215

REACTIONS (7)
  - Alopecia [Unknown]
  - Fatigue [Unknown]
  - Nasopharyngitis [Recovering/Resolving]
  - Ill-defined disorder [Unknown]
  - Jaundice [Unknown]
  - Urinary tract infection [Recovering/Resolving]
  - White blood cell count abnormal [Unknown]

NARRATIVE: CASE EVENT DATE: 201702
